FAERS Safety Report 10774637 (Version 1)
Quarter: 2015Q1

REPORT INFORMATION
  Report Type: Spontaneous
  Country: US (occurrence: None)
  Receive Date: 20150206
  Receipt Date: 20150206
  Transmission Date: 20150721
  Serious: No
  Sender: FDA-Public Use
  Company Number: HYP201306-000025

PATIENT

DRUGS (1)
  1. RAVICTI [Suspect]
     Active Substance: GLYCEROL PHENYLBUTYRATE
     Route: 048
     Dates: start: 2013

REACTIONS (1)
  - Alopecia [None]

NARRATIVE: CASE EVENT DATE: 2013
